FAERS Safety Report 16073436 (Version 6)
Quarter: 2020Q1

REPORT INFORMATION
  Report Type: Spontaneous
  Country: US (occurrence: US)
  Receive Date: 20190314
  Receipt Date: 20200123
  Transmission Date: 20200409
  Serious: Yes (Other)
  Sender: FDA-Public Use
  Company Number: US-LEXICON PHARMACEUTICALS, INC-19-1606-00279

PATIENT
  Sex: Female

DRUGS (14)
  1. UREA. [Concomitant]
     Active Substance: UREA
  2. TELOTRISTAT ETHYL [Suspect]
     Active Substance: TELOTRISTAT ETHYL
     Indication: CARCINOID TUMOUR OF THE STOMACH
  3. RANITIDINE. [Concomitant]
     Active Substance: RANITIDINE
  4. TELOTRISTAT ETHYL [Suspect]
     Active Substance: TELOTRISTAT ETHYL
     Indication: CARCINOID TUMOUR
  5. SUTENT [Concomitant]
     Active Substance: SUNITINIB MALATE
  6. LOMOTIL [Concomitant]
     Active Substance: ATROPINE SULFATE\DIPHENOXYLATE HYDROCHLORIDE
  7. CREON [Concomitant]
     Active Substance: PANCRELIPASE AMYLASE\PANCRELIPASE LIPASE\PANCRELIPASE PROTEASE
  8. ZOFRAN [Concomitant]
     Active Substance: ONDANSETRON HYDROCHLORIDE
  9. AFINITOR [Concomitant]
     Active Substance: EVEROLIMUS
     Indication: CARCINOID TUMOUR OF THE STOMACH
     Route: 048
  10. VITAMIN D [Concomitant]
     Active Substance: VITAMIN D NOS
  11. SANDOSTATIN LAR DEPOT [Concomitant]
     Active Substance: OCTREOTIDE ACETATE
  12. CLOTRIMAZOLE AND BETAMETHASONE DIPROPIONATE [Concomitant]
     Active Substance: BETAMETHASONE\BETAMETHASONE DIPROPIONATE\CLOTRIMAZOLE
  13. COLESTID [Concomitant]
     Active Substance: COLESTIPOL HYDROCHLORIDE
  14. TELOTRISTAT ETHYL [Suspect]
     Active Substance: TELOTRISTAT ETHYL
     Indication: LUNG NEOPLASM MALIGNANT
     Route: 048
     Dates: start: 20170407

REACTIONS (18)
  - Taste disorder [Unknown]
  - Urinary tract infection [Unknown]
  - Disease progression [Not Recovered/Not Resolved]
  - Memory impairment [Unknown]
  - Head titubation [Unknown]
  - Radioembolisation [Unknown]
  - Fine motor skill dysfunction [Unknown]
  - Abnormal sensation in eye [Unknown]
  - Fatigue [Unknown]
  - Pain in extremity [Not Recovered/Not Resolved]
  - Neuropathy peripheral [Unknown]
  - Acne [Unknown]
  - Blister [Unknown]
  - Weight fluctuation [Unknown]
  - Dry skin [Unknown]
  - Muscular weakness [Not Recovered/Not Resolved]
  - Surgery [Not Recovered/Not Resolved]
  - Liver operation [Not Recovered/Not Resolved]
